FAERS Safety Report 4821069-6 (Version None)
Quarter: 2005Q4

REPORT INFORMATION
  Report Type: 
  Country: None (occurrence: None)
  Receive Date: 20051104
  Receipt Date: 20050719
  Transmission Date: 20060501
  Serious: Yes (Hospitalization, Other)
  Sender: FDA-Public Use
  Company Number: US-MERCK-0507USA02778

PATIENT
  Age: 66 Year
  Sex: Male
  Weight: 113 kg

DRUGS (18)
  1. VIOXX [Suspect]
     Indication: ARTHRALGIA
     Route: 048
     Dates: start: 20000103, end: 20010601
  2. MONOPRIL [Concomitant]
     Route: 065
  3. CARDIZEM [Concomitant]
     Indication: BLOOD PRESSURE
     Route: 065
     Dates: start: 19990618, end: 20000601
  4. CARDIZEM [Concomitant]
     Indication: ANGINA PECTORIS
     Route: 065
     Dates: start: 19990618, end: 20000601
  5. AMOXICILLIN [Concomitant]
     Route: 065
  6. BELLADONNA [Concomitant]
     Indication: ABDOMINAL PAIN UPPER
     Route: 065
  7. DIAZEPAM [Concomitant]
     Indication: ANXIETY
     Route: 065
  8. ATROPINE SULFATE AND DIPHENOXYLATE HYDROCHLORIDE [Concomitant]
     Indication: DIARRHOEA
     Route: 065
  9. POLYETHYLENE GLYCOL 3350 [Concomitant]
     Indication: CONSTIPATION
     Route: 065
  10. ELECTROLYTES (UNSPECIFIED) [Concomitant]
     Route: 065
  11. LEVBID [Concomitant]
     Indication: IRRITABLE BOWEL SYNDROME
     Route: 065
  12. LORTAB [Concomitant]
     Route: 065
  13. PERCOCET [Concomitant]
     Indication: PAIN
     Route: 065
     Dates: start: 20010210, end: 20010301
  14. ROXICET [Concomitant]
     Indication: PAIN
     Route: 065
     Dates: start: 20010122, end: 20010301
  15. UNIVASC [Concomitant]
     Indication: HYPERTENSION
     Route: 065
  16. CELEBREX [Concomitant]
     Route: 065
     Dates: start: 19991206, end: 20000103
  17. GLUCOPHAGE [Concomitant]
     Route: 065
  18. GLUCOTROL [Concomitant]
     Route: 065

REACTIONS (46)
  - ANAEMIA [None]
  - ANGIOPLASTY [None]
  - ANKLE BRACHIAL INDEX DECREASED [None]
  - ARTERIAL OCCLUSIVE DISEASE [None]
  - ARTERIAL STENOSIS LIMB [None]
  - ARTERIOSCLEROSIS CORONARY ARTERY [None]
  - ATELECTASIS [None]
  - BLOOD PRESSURE SYSTOLIC INCREASED [None]
  - CARDIAC FAILURE CONGESTIVE [None]
  - CARDIOMEGALY [None]
  - CATHETERISATION CARDIAC [None]
  - CEREBROVASCULAR ACCIDENT [None]
  - CEREBROVASCULAR DISORDER [None]
  - CHEST PAIN [None]
  - CORONARY ARTERIAL STENT INSERTION [None]
  - CORONARY ARTERY DISEASE [None]
  - CORONARY ARTERY STENOSIS [None]
  - DIABETES MELLITUS [None]
  - DIABETES MELLITUS INSULIN-DEPENDENT [None]
  - DIARRHOEA [None]
  - DRUG HYPERSENSITIVITY [None]
  - DYSLIPIDAEMIA [None]
  - DYSPNOEA [None]
  - ELECTROENCEPHALOGRAM ABNORMAL [None]
  - HAEMATOMA [None]
  - HERPES ZOSTER [None]
  - INTERMITTENT CLAUDICATION [None]
  - IRON DEFICIENCY ANAEMIA [None]
  - MITRAL VALVE INCOMPETENCE [None]
  - NEUROPATHY PERIPHERAL [None]
  - OSTEOMYELITIS [None]
  - PERIPHERAL VASCULAR DISORDER [None]
  - PNEUMONIA [None]
  - POST PROCEDURAL HAEMATOMA [None]
  - RED BLOOD CELL SEDIMENTATION RATE INCREASED [None]
  - RENAL FAILURE [None]
  - SIMPLE PARTIAL SEIZURES [None]
  - SLEEP APNOEA SYNDROME [None]
  - STENT PLACEMENT [None]
  - SWELLING [None]
  - TOE AMPUTATION [None]
  - TRANSIENT ISCHAEMIC ATTACK [None]
  - TRICUSPID VALVE INCOMPETENCE [None]
  - ULTRASOUND DOPPLER ABNORMAL [None]
  - URINARY TRACT INFECTION [None]
  - VASCULAR PSEUDOANEURYSM [None]
